FAERS Safety Report 24411602 (Version 2)
Quarter: 2025Q1

REPORT INFORMATION
  Report Type: Report from Study
  Country: CN (occurrence: TW)
  Receive Date: 20241008
  Receipt Date: 20250123
  Transmission Date: 20250408
  Serious: Yes (Other)
  Sender: BAYER HEALTHCARE PHARMACEUTICALS INC.
  Company Number: CN-BAYER-2024A142778

PATIENT
  Age: 80 Year
  Sex: Female
  Weight: 52.6 kg

DRUGS (8)
  1. FINERENONE [Suspect]
     Active Substance: FINERENONE
     Indication: Type 2 diabetes mellitus
     Dosage: 20 MG, QD
     Dates: start: 20240426, end: 20240816
  2. FINERENONE [Suspect]
     Active Substance: FINERENONE
     Indication: Chronic kidney disease
  3. EMPAGLIFLOZIN\METFORMIN HYDROCHLORIDE [Concomitant]
     Active Substance: EMPAGLIFLOZIN\METFORMIN HYDROCHLORIDE
     Indication: Type 2 diabetes mellitus
     Dates: start: 20191004
  4. EXFORGE HCT [Concomitant]
     Active Substance: AMLODIPINE BESYLATE\HYDROCHLOROTHIAZIDE\VALSARTAN
     Dates: start: 20191121, end: 20241102
  5. EXFORGE HCT [Concomitant]
     Active Substance: AMLODIPINE BESYLATE\HYDROCHLOROTHIAZIDE\VALSARTAN
     Dosage: 1 DF, QD
     Dates: start: 20241108
  6. ASPIRIN [Concomitant]
     Active Substance: ASPIRIN
     Dates: start: 20210430
  7. ATORVASTATIN CALCIUM\EZETIMIBE [Concomitant]
     Active Substance: ATORVASTATIN CALCIUM\EZETIMIBE
     Dates: start: 20220107
  8. COMPOUND GLYCYRRHIZA MIXTURE [Concomitant]
     Indication: Prophylaxis
     Dates: start: 20240426, end: 20240501

REACTIONS (1)
  - Hypotension [Recovering/Resolving]

NARRATIVE: CASE EVENT DATE: 20240816
